FAERS Safety Report 6667725-9 (Version None)
Quarter: 2010Q2

REPORT INFORMATION
  Report Type: 
  Country: None (occurrence: None)
  Receive Date: 20100405
  Receipt Date: 20100330
  Transmission Date: 20101027
  Serious: Yes (Hospitalization)
  Sender: FDA-Public Use
  Company Number: US-GENENTECH-298992

PATIENT
  Sex: Male
  Weight: 96.145 kg

DRUGS (1)
  1. RITUXAN [Suspect]
     Indication: NON-HODGKIN'S LYMPHOMA
     Dosage: 799 MG, 1/WEEK
     Route: 042
     Dates: start: 20100219, end: 20100305

REACTIONS (1)
  - CONVULSION [None]
